FAERS Safety Report 5803192-2 (Version None)
Quarter: 2008Q3

REPORT INFORMATION
  Report Type: 
  Country: None (occurrence: None)
  Receive Date: 20080701
  Receipt Date: 20080129
  Transmission Date: 20090109
  Serious: Yes (Hospitalization)
  Sender: FDA-Public Use
  Company Number: US200801006424

PATIENT
  Age: 32 Year
  Sex: Female

DRUGS (4)
  1. HUMALOG [Suspect]
     Dates: start: 20060101, end: 20071201
  2. HUMULIN N [Suspect]
     Dates: start: 20071201
  3. HUMULIN N [Suspect]
     Dates: start: 20071201
  4. HUMULIN R [Suspect]
     Dates: start: 20071201

REACTIONS (3)
  - BLOOD GLUCOSE INCREASED [None]
  - DRUG EXPOSURE DURING PREGNANCY [None]
  - INJECTION SITE PAIN [None]
